FAERS Safety Report 6599946-8 (Version None)
Quarter: 2010Q1

REPORT INFORMATION
  Report Type: 
  Country: None (occurrence: None)
  Receive Date: 20100217
  Receipt Date: 20100210
  Transmission Date: 20100710
  Serious: Yes (Other)
  Sender: FDA-Public Use
  Company Number: 1000011083

PATIENT
  Age: 72 Year
  Sex: Female

DRUGS (6)
  1. LEXAPRO [Suspect]
     Indication: DEPRESSION
     Dosage: 10 MG (10 MG, 1 IN 1 D), ORAL
     Route: 048
     Dates: start: 20080101, end: 20091201
  2. LEXAPRO [Suspect]
     Indication: DEPRESSION
     Dosage: 5 MG (5 MG, 1 IN 1 D), ORAL
     Route: 048
     Dates: start: 20091201, end: 20091201
  3. COZAAR [Concomitant]
  4. TYLENOL-500 [Concomitant]
  5. SYNTHROID [Concomitant]
  6. NEBULIZER [Concomitant]

REACTIONS (3)
  - DYSGEUSIA [None]
  - MACULAR DEGENERATION [None]
  - RETINAL HAEMORRHAGE [None]
